FAERS Safety Report 7092156-X (Version None)
Quarter: 2010Q4

REPORT INFORMATION
  Report Type: 
  Country: None (occurrence: None)
  Receive Date: 20101029
  Receipt Date: 20101018
  Transmission Date: 20110411
  Serious: Yes (Death)
  Sender: FDA-Public Use
  Company Number: 1000016894

PATIENT
  Age: 78 Year
  Sex: Male

DRUGS (4)
  1. MEMANTINE HCL [Suspect]
     Indication: DEMENTIA ALZHEIMER'S TYPE
     Dosage: 20 MG (20 MG,1 IN 1 D),ORAL
     Route: 048
     Dates: start: 20080603, end: 20101014
  2. ARICEPT D (DONEZEPIL HYDROCHLORIDE) (DONEZEPIL HYDROCHLORIDE) [Concomitant]
  3. PURSENNID (SENNA ALEXANDRIA LEAF) (SENNA ALEXANDRINA LEAF) [Concomitant]
  4. ACTOS (DONEPEZIL HYDROCHLORIDE) (DONEPEZIL HYDROCHLORIDE) [Concomitant]

REACTIONS (5)
  - ASPHYXIA [None]
  - CHOKING [None]
  - CONDITION AGGRAVATED [None]
  - DEMENTIA ALZHEIMER'S TYPE [None]
  - DYSPHAGIA [None]
